FAERS Safety Report 9043175 (Version 1)
Quarter: 2013Q1

REPORT INFORMATION
  Report Type: Spontaneous
  Country: US (occurrence: US)
  Receive Date: 20130129
  Receipt Date: 20130129
  Transmission Date: 20140127
  Serious: No
  Sender: FDA-Public Use
  Company Number: US-ABBOTT-12P-163-0914196-00

PATIENT
  Sex: Male
  Weight: 67.19 kg

DRUGS (2)
  1. HUMIRA 40 MG/ 0.8 ML PRE-FILLED SYRINGE [Suspect]
     Indication: COLITIS ULCERATIVE
     Dosage: 2 INJECTIONS ON DAY 1
     Route: 058
     Dates: start: 20120301, end: 20120301
  2. HUMIRA 40 MG/ 0.8 ML PRE-FILLED SYRINGE [Suspect]
     Route: 058

REACTIONS (3)
  - Dysgeusia [Recovered/Resolved]
  - Dysgeusia [Recovered/Resolved]
  - Off label use [None]
